FAERS Safety Report 10674036 (Version 1)
Quarter: 2014Q4

REPORT INFORMATION
  Report Type: Spontaneous
  Country: US (occurrence: None)
  Receive Date: 20141222
  Receipt Date: 20141222
  Transmission Date: 20150529
  Serious: Yes (Hospitalization)
  Sender: FDA-Public Use
  Company Number: CIO14084986

PATIENT
  Age: 13 Year
  Sex: Female

DRUGS (3)
  1. ADDERALL XR [Concomitant]
     Active Substance: AMPHETAMINE ASPARTATE\AMPHETAMINE SULFATE\DEXTROAMPHETAMINE SACCHARATE\DEXTROAMPHETAMINE SULFATE
  2. SACCHARATE DEXAMFETAMINE SULFATE [Concomitant]
  3. DIPHENHYDRAMINE HCL [Suspect]
     Active Substance: DIPHENHYDRAMINE HYDROCHLORIDE
     Indication: PRODUCT USED FOR UNKNOWN INDICATION
     Dosage: 24-25MG PILLS AT ONE TIME ORAL
     Route: 048

REACTIONS (23)
  - Hallucination [None]
  - Drug abuse [None]
  - Aggression [None]
  - Blood potassium decreased [None]
  - Psychotic disorder [None]
  - Hypertension [None]
  - Flushing [None]
  - Hallucination, tactile [None]
  - Disorientation [None]
  - Amphetamines positive [None]
  - Anticholinergic syndrome [None]
  - Intentional overdose [None]
  - Mucosal dryness [None]
  - Hallucination, visual [None]
  - Heart rate increased [None]
  - Agitation [None]
  - Tachycardia [None]
  - Incoherent [None]
  - Mydriasis [None]
  - Confusional state [None]
  - Mental status changes [None]
  - Cardiac murmur [None]
  - Anxiety [None]
